FAERS Safety Report 11320767 (Version 2)
Quarter: 2015Q3

REPORT INFORMATION
  Report Type: Spontaneous
  Country: GB (occurrence: GB)
  Receive Date: 20150729
  Receipt Date: 20150807
  Transmission Date: 20151125
  Serious: Yes (Hospitalization)
  Sender: FDA-Public Use
  Company Number: GB-PFIZER INC-2015246352

PATIENT
  Age: 73 Year
  Sex: Male

DRUGS (28)
  1. GABAPENTIN. [Suspect]
     Active Substance: GABAPENTIN
     Dosage: 100 MG, 3X/DAY INCREASING DOSE AT WEEKLY INTERVALS
     Dates: start: 20150603
  2. BISOPROLOL [Concomitant]
     Active Substance: BISOPROLOL
     Dosage: 2.5 MG, 1X/DAY
  3. DOCUSATE [Concomitant]
     Active Substance: DOCUSATE
     Dosage: 100 MG, TWICE DAILY AS REQUIRED
  4. RANITIDINE [Concomitant]
     Active Substance: RANITIDINE\RANITIDINE HYDROCHLORIDE
     Dosage: 150 MG, 2X/DAY
  5. FUROSEMIDE. [Concomitant]
     Active Substance: FUROSEMIDE
     Dosage: 80 MG, 2X/DAY RECENTLY INCREASED.
  6. METFORMIN [Concomitant]
     Active Substance: METFORMIN HYDROCHLORIDE
     Dosage: 500 MG, 3X/DAY
  7. WARFARIN [Concomitant]
     Active Substance: WARFARIN
     Dosage: 51 MG, 8 MG MONDAY AND FRIDAY. 7 MG OTHER DAYS. (TARGET INTERNATIONAL NORMALISED RATIO 2.5).
  8. CAPASAL [Concomitant]
     Dosage: UNK
  9. LANTUS [Concomitant]
     Active Substance: INSULIN GLARGINE
     Dosage: 16 IU, 1X/DAY 16 UNITS EVERY MORNING. 100 UNITS/ML
  10. NICORANDIL [Concomitant]
     Active Substance: NICORANDIL
     Dosage: 20 MG, 2X/DAY
  11. SPIRONOLACTONE. [Concomitant]
     Active Substance: SPIRONOLACTONE
     Dosage: 25 MG, 1X/DAY
  12. MOVICOL [Concomitant]
     Active Substance: POLYETHYLENE GLYCOL 3350\POTASSIUM CHLORIDE\SODIUM BICARBONATE\SODIUM CHLORIDE
     Dosage: 13.8 G, 2X/DAY
     Route: 048
  13. ATORVASTATIN [Concomitant]
     Active Substance: ATORVASTATIN
     Dosage: 80 MG, 1X/DAY
  14. MORPHINE [Concomitant]
     Active Substance: MORPHINE
     Dosage: 40 MG, 2X/DAY MODIFIED RELEASE. INCREASED FROM 15MG TWICE A DAY
     Dates: start: 201506
  15. PARACETAMOL [Concomitant]
     Active Substance: ACETAMINOPHEN
     Dosage: 1 G, 4X/DAY
  16. GABAPENTIN. [Suspect]
     Active Substance: GABAPENTIN
     Dosage: 300 MG, 3X/DAY INCREASING DOSE AT WEEKLY INTERVALS
     Dates: end: 20150625
  17. GLYCERYL TRINITRATE [Concomitant]
     Active Substance: NITROGLYCERIN
     Dosage: 400 ?G, UNK
     Route: 060
  18. LOSARTAN. [Concomitant]
     Active Substance: LOSARTAN
     Dosage: 50 MG, 1X/DAY
  19. TAMSULOSIN [Concomitant]
     Active Substance: TAMSULOSIN
     Dosage: 400 ?G, 1X/DAY MODIFIED RELEASE.
  20. ISOSORBIDE MONONITRATE. [Concomitant]
     Active Substance: ISOSORBIDE MONONITRATE
     Dosage: 90 MG, 1X/DAY MODIFIED RELEASE.
  21. SALBUTAMOL [Concomitant]
     Active Substance: ALBUTEROL
     Dosage: UNK
     Route: 055
  22. SENNA [Concomitant]
     Active Substance: SENNA LEAF\SENNOSIDES\SENNOSIDES A AND B
     Dosage: 15 MG, 1X/DAY AT NIGHT.
  23. GABAPENTIN. [Suspect]
     Active Substance: GABAPENTIN
     Dosage: 200 MG, 3X/DAY INCREASING DOSE AT WEEKLY INTERVALS
  24. SERETIDE [Concomitant]
     Active Substance: FLUTICASONE FUROATE\SALMETEROL XINAFOATE
     Dosage: 2 DF, 2X/DAY 2 PUFFS
     Route: 055
  25. TIOTROPIUM BROMIDE [Concomitant]
     Active Substance: TIOTROPIUM BROMIDE
     Dosage: 18 ?G, 1X/DAY
     Route: 055
  26. CODEINE [Concomitant]
     Active Substance: CODEINE
     Dosage: 60 MG, 4X/DAY
  27. FERROUS FUMARATE [Concomitant]
     Active Substance: FERROUS FUMARATE
     Dosage: 210 MG, 2X/DAY
  28. MORPHINE [Concomitant]
     Active Substance: MORPHINE
     Dosage: 5 MG, UNK LIQUID

REACTIONS (3)
  - Dyskinesia [Recovered/Resolved]
  - Tremor [Recovered/Resolved]
  - Abnormal weight gain [Unknown]

NARRATIVE: CASE EVENT DATE: 20150610
